FAERS Safety Report 17577815 (Version 1)
Quarter: 2020Q1

REPORT INFORMATION
  Report Type: Spontaneous
  Country: JP (occurrence: JP)
  Receive Date: 20200324
  Receipt Date: 20200324
  Transmission Date: 20200409
  Serious: Yes (Hospitalization, Other)
  Sender: FDA-Public Use
  Company Number: JP-ASTRAZENECA-2020SE40486

PATIENT
  Age: 57 Year
  Sex: Female

DRUGS (1)
  1. SYMBICORT [Suspect]
     Active Substance: BUDESONIDE\FORMOTEROL FUMARATE DIHYDRATE
     Dosage: 30 DOSES UNKNOWN
     Route: 055

REACTIONS (4)
  - Hypoaesthesia [Unknown]
  - Spinal disorder [Unknown]
  - Muscle twitching [Unknown]
  - Tremor [Recovered/Resolved]
